FAERS Safety Report 10413742 (Version 6)
Quarter: 2016Q2

REPORT INFORMATION
  Report Type: Spontaneous
  Country: US (occurrence: US)
  Receive Date: 20140827
  Receipt Date: 20160406
  Transmission Date: 20160815
  Serious: Yes (Hospitalization, Other)
  Sender: FDA-Public Use
  Company Number: US-009507513-1408USA011541

PATIENT
  Sex: Female

DRUGS (12)
  1. FOSAMAX [Suspect]
     Active Substance: ALENDRONATE SODIUM
     Indication: OSTEOPOROSIS
     Dosage: 70 MG, QW
     Route: 048
     Dates: start: 200403, end: 200804
  2. CELEBREX [Concomitant]
     Active Substance: CELECOXIB
     Indication: PAIN
     Dosage: UNK, UNKNOWN
     Route: 065
     Dates: start: 1994
  3. VITAMINS (UNSPECIFIED) [Concomitant]
     Active Substance: VITAMINS
     Indication: ROUTINE HEALTH MAINTENANCE
     Dosage: 1 DF, QD
     Route: 065
     Dates: start: 1994
  4. VITAMIN E [Concomitant]
     Active Substance: .ALPHA.-TOCOPHEROL
     Indication: ROUTINE HEALTH MAINTENANCE
     Dosage: 800 MG, QD
     Route: 065
     Dates: start: 1994
  5. LISINOPRIL. [Concomitant]
     Active Substance: LISINOPRIL
     Indication: HYPERTENSION
     Dosage: UNK, UNKNOWN
     Route: 065
     Dates: start: 1994
  6. METOPROLOL. [Concomitant]
     Active Substance: METOPROLOL
     Indication: HYPERTENSION
     Dosage: UNK, UNKNOWN
     Route: 065
     Dates: start: 1994
  7. CALCIUM (UNSPECIFIED) [Concomitant]
     Active Substance: CALCIUM
     Indication: ROUTINE HEALTH MAINTENANCE
     Dosage: 500 MG, QD
     Route: 065
     Dates: start: 1994
  8. CHONDROITIN SULFATE SODIUM (+) GLUCOSAMINE SULFATE [Concomitant]
     Indication: ROUTINE HEALTH MAINTENANCE
     Dosage: 1500 MG, QD
     Route: 065
     Dates: start: 1994
  9. ALENDRONATE SODIUM. [Suspect]
     Active Substance: ALENDRONATE SODIUM
     Indication: OSTEOPOROSIS
     Dosage: 70 MG, QW
     Route: 048
     Dates: start: 200804, end: 201109
  10. NEXIUM [Concomitant]
     Active Substance: ESOMEPRAZOLE MAGNESIUM
     Indication: GASTROOESOPHAGEAL REFLUX DISEASE
     Dosage: UNK, UNKNOWN
     Route: 065
     Dates: start: 1994
  11. ZETIA [Concomitant]
     Active Substance: EZETIMIBE
     Indication: BLOOD CHOLESTEROL INCREASED
     Dosage: UNK, UNKNOWN
     Route: 065
     Dates: start: 1994
  12. FOSAMAX PLUS D [Suspect]
     Active Substance: ALENDRONATE SODIUM\CHOLECALCIFEROL
     Indication: PRODUCT USED FOR UNKNOWN INDICATION
     Dosage: 70/2800 WEEKLY
     Route: 048
     Dates: start: 2007, end: 2008

REACTIONS (17)
  - Hypertonic bladder [Unknown]
  - Renal failure [Recovered/Resolved]
  - Osteoporosis [Unknown]
  - Anaemia [Unknown]
  - Fracture nonunion [Unknown]
  - Knee arthroplasty [Unknown]
  - Hip arthroplasty [Unknown]
  - Tonsillar disorder [Unknown]
  - Pyrexia [Unknown]
  - Femur fracture [Unknown]
  - Heart rate irregular [Unknown]
  - Femur fracture [Unknown]
  - Arthralgia [Unknown]
  - Gallbladder disorder [Unknown]
  - Arthritis [Unknown]
  - Iron deficiency anaemia [Unknown]
  - Device failure [Unknown]

NARRATIVE: CASE EVENT DATE: 20041120
